FAERS Safety Report 4317748-X (Version None)
Quarter: 2004Q1

REPORT INFORMATION
  Report Type: 
  Country: None (occurrence: None)
  Receive Date: 20040315
  Receipt Date: 20040305
  Transmission Date: 20041129
  Serious: Yes (Death)
  Sender: FDA-Public Use
  Company Number: PHBS2004GB03203

PATIENT
  Age: 61 Year
  Sex: Male

DRUGS (2)
  1. BASILIXIMAB [Suspect]
     Indication: GRAFT VERSUS HOST DISEASE
     Route: 065
  2. METHYLPREDNISOLONE [Concomitant]
     Route: 042

REACTIONS (1)
  - GRAFT VERSUS HOST DISEASE [None]
